FAERS Safety Report 13109381 (Version 2)
Quarter: 2017Q1

REPORT INFORMATION
  Report Type: Spontaneous
  Country: CN (occurrence: CN)
  Receive Date: 20170112
  Receipt Date: 20170215
  Transmission Date: 20170428
  Serious: No
  Sender: FDA-Public Use
  Company Number: CN-009507513-1701CHN004966

PATIENT
  Age: 74 Year
  Sex: Female
  Weight: 57 kg

DRUGS (4)
  1. VANCOMYCIN [Concomitant]
     Active Substance: VANCOMYCIN
     Indication: STAPHYLOCOCCAL INFECTION
     Dosage: 1 G, IV GTT, Q12H
     Route: 041
  2. IMIPENEM AND CILASTATIN [Suspect]
     Active Substance: CILASTATIN SODIUM\IMIPENEM
     Indication: ENTEROBACTER INFECTION
     Dosage: 1.0 G, KEEPING INFUSING FOR 2 H, Q6H
     Route: 041
  3. CEFMINOX [Concomitant]
     Active Substance: CEFMINOX SODIUM
     Indication: ANTI-INFECTIVE THERAPY
     Dosage: UNK
  4. CEFOPERAZONE SODIUM (+) SULBACTAM SODIUM [Concomitant]
     Active Substance: CEFOPERAZONE SODIUM\SULBACTAM SODIUM
     Indication: ANTI-INFECTIVE THERAPY
     Dosage: UNK

REACTIONS (3)
  - Tongue coated [Recovered/Resolved]
  - Oral fungal infection [Recovered/Resolved]
  - Diarrhoea [Recovered/Resolved]
